FAERS Safety Report 17574348 (Version 2)
Quarter: 2020Q2

REPORT INFORMATION
  Report Type: Report from Study
  Country: US (occurrence: US)
  Receive Date: 20200324
  Receipt Date: 20200403
  Transmission Date: 20200713
  Serious: Yes (Hospitalization)
  Sender: FDA-Public Use
  Company Number: US-ROCHE-2567816

PATIENT
  Age: 49 Year
  Sex: Male
  Weight: 76.2 kg

DRUGS (13)
  1. NEUROTIN [GABAPENTIN] [Concomitant]
     Route: 065
     Dates: start: 20180404
  2. K-TAB [Concomitant]
     Active Substance: POTASSIUM CHLORIDE
     Route: 065
     Dates: start: 20180404
  3. RMC 4630 [Suspect]
     Active Substance: RMC-4630
     Indication: COLON CANCER METASTATIC
     Dosage: (BIWEEKLY, D1 AND D4)?MOST RECENT DOSE: 23/FEB/2020
     Route: 048
     Dates: start: 20200102
  4. MELATONIN [Concomitant]
     Active Substance: MELATONIN
     Route: 065
     Dates: start: 20190724
  5. GLUCOPHAGE [Concomitant]
     Active Substance: METFORMIN HYDROCHLORIDE
     Route: 065
     Dates: start: 20190724
  6. LIPITOR [Concomitant]
     Active Substance: ATORVASTATIN CALCIUM
     Route: 065
     Dates: start: 20160317
  7. FOLIC ACID. [Concomitant]
     Active Substance: FOLIC ACID
     Route: 065
     Dates: start: 20180404
  8. SINGULAIR [Concomitant]
     Active Substance: MONTELUKAST SODIUM
     Route: 065
     Dates: start: 20160317
  9. ZYRTEC [Concomitant]
     Active Substance: CETIRIZINE HYDROCHLORIDE
     Route: 065
     Dates: start: 20190730
  10. ZESTORETIC [Concomitant]
     Active Substance: HYDROCHLOROTHIAZIDE\LISINOPRIL
     Dosage: 20-12.5 MILLIGRAM
     Route: 065
     Dates: start: 20160317
  11. VITAMIN B6 [Concomitant]
     Active Substance: PYRIDOXINE HYDROCHLORIDE
     Route: 065
     Dates: start: 20180404
  12. ATARAX [Concomitant]
     Active Substance: HYDROXYZINE HYDROCHLORIDE
     Route: 065
     Dates: start: 20190724
  13. COBIMETINIB. [Suspect]
     Active Substance: COBIMETINIB
     Indication: COLON CANCER METASTATIC
     Dosage: FROM DAY 1 - DAY 21, ON 19/FEB/2020, HE RECEIVED MOST RECENT DOSE OF  COBIMETINIB
     Route: 065
     Dates: start: 20200102

REACTIONS (1)
  - Intestinal obstruction [Recovered/Resolved]

NARRATIVE: CASE EVENT DATE: 20200224
